FAERS Safety Report 9937420 (Version 2)
Quarter: 2014Q1

REPORT INFORMATION
  Report Type: Spontaneous
  Country: JP (occurrence: JP)
  Receive Date: 20140303
  Receipt Date: 20140305
  Transmission Date: 20141002
  Serious: Yes (Death, Hospitalization)
  Sender: FDA-Public Use
  Company Number: JP-ROCHE-1354690

PATIENT
  Age: 65 Year
  Sex: Male

DRUGS (8)
  1. CELLCEPT [Suspect]
     Indication: PROPHYLAXIS AGAINST TRANSPLANT REJECTION
     Dosage: DOSAGE IS UNCERTAIN.
     Route: 048
  2. CICLOSPORIN [Suspect]
     Indication: PROPHYLAXIS AGAINST TRANSPLANT REJECTION
     Route: 048
     Dates: start: 2009
  3. NATEGLINIDE [Concomitant]
     Dosage: DOSAGE IS UNCERTAIN.
     Route: 048
  4. TAMSULOSIN [Concomitant]
     Dosage: DOSAGE IS UNCERTAIN.
     Route: 048
  5. CILOSTAZOL [Concomitant]
     Dosage: DOSAGE IS UNCERTAIN.
     Route: 048
  6. RABEPRAZOLE SODIUM [Concomitant]
     Dosage: DOSAGE IS UNCERTAIN.
     Route: 048
  7. PREDNISOLONE [Concomitant]
     Indication: PROPHYLAXIS AGAINST TRANSPLANT REJECTION
     Dosage: 50MG TO 20MG TO 10MG  TO 5MG
     Route: 048
  8. TACROLIMUS HYDRATE [Concomitant]
     Indication: PROPHYLAXIS AGAINST TRANSPLANT REJECTION
     Dosage: DOSAGE IS UNCERTAIN.
     Route: 048
     Dates: start: 2009

REACTIONS (5)
  - Drug-induced liver injury [Fatal]
  - Renal failure [Fatal]
  - Hepatic failure [Fatal]
  - Infection [Fatal]
  - Cytomegalovirus gastroenteritis [Unknown]
